FAERS Safety Report 8917396 (Version 1)
Quarter: 2012Q4

REPORT INFORMATION
  Report Type: 
  Country: CR (occurrence: CR)
  Receive Date: 20121120
  Receipt Date: 20121120
  Transmission Date: 20130627
  Serious: Yes (Hospitalization)
  Sender: FDA-Public Use
  Company Number: CR-BRISTOL-MYERS SQUIBB COMPANY-17135070

PATIENT
  Age: 83 Year
  Sex: Male

DRUGS (1)
  1. COAPROVEL TABS [Suspect]
     Indication: HYPERTENSION
     Route: 048
     Dates: start: 201209, end: 201209

REACTIONS (1)
  - Eczema [Recovered/Resolved]
